FAERS Safety Report 10168966 (Version 1)
Quarter: 2014Q2

REPORT INFORMATION
  Report Type: Spontaneous
  Country: IT (occurrence: None)
  Receive Date: 20140509
  Receipt Date: 20140509
  Transmission Date: 20141212
  Serious: Yes (Other)
  Sender: FDA-Public Use
  Company Number: AUR-APL-2014-05357

PATIENT
  Age: 54 Year
  Sex: Male

DRUGS (4)
  1. ESCITALOPRAM (ESCITALOPRAM) [Suspect]
     Indication: DEPRESSION
  2. VALPROATE SODIUM (VALPROATE SODIUM) [Concomitant]
  3. AMISULPRIDE (AMISULPRIDE) [Concomitant]
  4. LITHIUM (LITHIUM) [Concomitant]

REACTIONS (15)
  - Depression [None]
  - Sedation [None]
  - Anxiety [None]
  - Tremor [None]
  - Akathisia [None]
  - Bruxism [None]
  - Middle insomnia [None]
  - Myalgia [None]
  - Apathy [None]
  - Anhedonia [None]
  - Nervousness [None]
  - Anger [None]
  - Tongue biting [None]
  - Hypomania [None]
  - Bruxism [None]
